FAERS Safety Report 8780910 (Version 1)
Quarter: 2012Q4

REPORT INFORMATION
  Report Type: 
  Country: US (occurrence: US)
  Receive Date: 20120913
  Receipt Date: 20120913
  Transmission Date: 20130627
  Serious: No
  Sender: FDA-Public Use
  Company Number: US-PFIZER INC-2012222388

PATIENT
  Age: 80 Year
  Sex: Male

DRUGS (2)
  1. AZITHROMYCIN [Suspect]
     Indication: PROPHYLAXIS
     Dosage: UNK
  2. ALLEGRA [Suspect]
     Indication: SEASONAL ALLERGY
     Dosage: 180 mg, 1x/day
     Route: 048

REACTIONS (1)
  - Dizziness [Not Recovered/Not Resolved]
